FAERS Safety Report 9899526 (Version 1)
Quarter: 2014Q1

REPORT INFORMATION
  Report Type: Spontaneous
  Country: US (occurrence: US)
  Receive Date: 20140214
  Receipt Date: 20140214
  Transmission Date: 20141002
  Serious: Yes (Hospitalization, Disabling, Other)
  Sender: FDA-Public Use
  Company Number: US-TEVA-462848USA

PATIENT
  Sex: Female

DRUGS (2)
  1. ALENDRONIC ACID [Suspect]
  2. FOSAMAX [Suspect]

REACTIONS (4)
  - Femur fracture [Unknown]
  - Lower limb fracture [Unknown]
  - Bone disorder [Unknown]
  - Low turnover osteopathy [Unknown]
